FAERS Safety Report 7102549-X (Version None)
Quarter: 2010Q4

REPORT INFORMATION
  Report Type: 
  Country: None (occurrence: None)
  Receive Date: 20101115
  Receipt Date: 20101104
  Transmission Date: 20110411
  Serious: Yes (Death, Other)
  Sender: FDA-Public Use
  Company Number: JP-ROCHE-739843

PATIENT
  Age: 25 Year
  Sex: Female

DRUGS (5)
  1. CELLCEPT [Suspect]
     Indication: GRAFT VERSUS HOST DISEASE
     Route: 048
  2. FLUDARABINE PHOSPHATE [Concomitant]
     Route: 065
  3. MELPHALAN HYDROCHLORIDE [Concomitant]
     Route: 065
  4. CYCLOSPORINE [Concomitant]
     Route: 065
  5. PREDNISOLONE [Concomitant]
     Route: 065

REACTIONS (3)
  - ACUTE RESPIRATORY DISTRESS SYNDROME [None]
  - PNEUMONIA VIRAL [None]
  - THROMBOTIC MICROANGIOPATHY [None]
